FAERS Safety Report 9798249 (Version 1)
Quarter: 2014Q1

REPORT INFORMATION
  Report Type: Spontaneous
  Country: US (occurrence: None)
  Receive Date: 20140102
  Receipt Date: 20140102
  Transmission Date: 20141002
  Serious: No
  Sender: FDA-Public Use
  Company Number: None

PATIENT
  Age: 53 Year
  Sex: Male
  Weight: 104.5 kg

DRUGS (1)
  1. MORPHINE [Suspect]
     Route: 048
     Dates: start: 20131229, end: 20131229

REACTIONS (1)
  - Mental status changes [None]
